FAERS Safety Report 7385323-9 (Version None)
Quarter: 2011Q1

REPORT INFORMATION
  Report Type: 
  Country: None (occurrence: None)
  Receive Date: 20110330
  Receipt Date: 20100728
  Transmission Date: 20110831
  Serious: No
  Sender: FDA-Public Use
  Company Number: US-MYLANLABS-2010S1013635

PATIENT
  Sex: Male
  Weight: 74.84 kg

DRUGS (2)
  1. EMSAM [Suspect]
     Indication: DEPRESSION
     Dosage: CHANGED Q24H
     Route: 062
     Dates: start: 20090101
  2. TRAMADOL [Concomitant]
     Indication: BACK PAIN

REACTIONS (2)
  - HYPERHIDROSIS [None]
  - MUSCULOSKELETAL STIFFNESS [None]
